FAERS Safety Report 7583485-1 (Version None)
Quarter: 2011Q2

REPORT INFORMATION
  Report Type: 
  Country: None (occurrence: None)
  Receive Date: 20110630
  Receipt Date: 20110622
  Transmission Date: 20111010
  Serious: Yes (Other)
  Sender: FDA-Public Use
  Company Number: JP-ROCHE-763551

PATIENT
  Sex: Female
  Weight: 2.6 kg

DRUGS (2)
  1. OSELTAMIVIR [Suspect]
     Indication: INFLUENZA
     Dosage: DOSE FORM: ORAL FORMULATION
     Route: 064
     Dates: start: 20091106, end: 20091110
  2. FLU VACCINATION [Concomitant]
     Dosage: REPORTED AS : SEASONAL FLU VACCINATION.
     Route: 064

REACTIONS (3)
  - DRUG EXPOSURE DURING PREGNANCY [None]
  - OROPHARYNGEAL PAIN [None]
  - NORMAL NEWBORN [None]
